FAERS Safety Report 8248602-9 (Version None)
Quarter: 2012Q1

REPORT INFORMATION
  Report Type: 
  Country: None (occurrence: None)
  Receive Date: 20120330
  Receipt Date: 20120323
  Transmission Date: 20120608
  Serious: Yes (Disabling)
  Sender: FDA-Public Use
  Company Number: DK-ASTRAZENECA-2012SE19969

PATIENT
  Age: 70 Year
  Sex: Male

DRUGS (5)
  1. LOSARTAN POTASSIUM [Concomitant]
  2. AMLODIPINE [Concomitant]
  3. CENTYL M KCL [Concomitant]
  4. PULMICORT [Suspect]
     Route: 055
  5. ONBREZ [Concomitant]

REACTIONS (2)
  - VISUAL ACUITY REDUCED [None]
  - CHORIORETINOPATHY [None]
